FAERS Safety Report 18793974 (Version 1)
Quarter: 2021Q1

REPORT INFORMATION
  Report Type: Spontaneous
  Country: US (occurrence: US)
  Receive Date: 20210126
  Receipt Date: 20210126
  Transmission Date: 20210419
  Serious: No
  Sender: FDA-Public Use
  Company Number: None

PATIENT
  Age: 38 Year
  Sex: Female
  Weight: 75.75 kg

DRUGS (1)
  1. NUVARING [Suspect]
     Active Substance: ETHINYL ESTRADIOL\ETONOGESTREL
     Dosage: ?          OTHER DOSE:0.12?0.015MG/24HR;OTHER FREQUENCY:Q3 WEEKS;?
     Route: 067

REACTIONS (8)
  - Nausea [None]
  - Depression [None]
  - Migraine [None]
  - Drug intolerance [None]
  - Metrorrhagia [None]
  - Product substitution issue [None]
  - Muscle spasms [None]
  - Acne [None]
